FAERS Safety Report 21193646 (Version 1)
Quarter: 2022Q3

REPORT INFORMATION
  Report Type: Spontaneous
  Country: FR (occurrence: FR)
  Receive Date: 20220810
  Receipt Date: 20220810
  Transmission Date: 20221027
  Serious: Yes (Other)
  Sender: FDA-Public Use
  Company Number: FR-PBT-004970

PATIENT
  Age: 72 Year
  Sex: Male

DRUGS (9)
  1. TACROLIMUS [Interacting]
     Active Substance: TACROLIMUS
     Indication: Prophylaxis against transplant rejection
     Route: 065
  2. MYCOPHENOLATE MOFETIL [Suspect]
     Active Substance: MYCOPHENOLATE MOFETIL
     Indication: Prophylaxis against transplant rejection
     Route: 065
  3. PACLITAXEL [Suspect]
     Active Substance: PACLITAXEL
     Indication: Lung adenocarcinoma
     Route: 065
     Dates: end: 202106
  4. PREDNISOLONE [Suspect]
     Active Substance: PREDNISOLONE
     Indication: Prophylaxis against transplant rejection
     Route: 065
  5. EVEROLIMUS [Interacting]
     Active Substance: EVEROLIMUS
     Indication: Renal impairment
     Route: 065
     Dates: start: 2013
  6. SOTORASIB [Interacting]
     Active Substance: SOTORASIB
     Indication: Lung adenocarcinoma
     Route: 065
     Dates: start: 20211019, end: 20211213
  7. EVEROLIMUS [Interacting]
     Active Substance: EVEROLIMUS
     Indication: Renal impairment
     Route: 065
     Dates: start: 2013
  8. EVEROLIMUS [Interacting]
     Active Substance: EVEROLIMUS
     Indication: Renal impairment
     Route: 065
     Dates: start: 2013
  9. SOTORASIB [Interacting]
     Active Substance: SOTORASIB
     Indication: Lung adenocarcinoma
     Dosage: DAY 60 ONWARDS
     Route: 065
     Dates: start: 20211214

REACTIONS (4)
  - Lung adenocarcinoma [Unknown]
  - Transplant rejection [Unknown]
  - Product use in unapproved indication [Unknown]
  - Drug interaction [Unknown]
